FAERS Safety Report 23795768 (Version 1)
Quarter: 2024Q2

REPORT INFORMATION
  Report Type: Spontaneous
  Country: FR (occurrence: FR)
  Receive Date: 20240429
  Receipt Date: 20240429
  Transmission Date: 20240716
  Serious: Yes (Life-Threatening)
  Sender: FDA-Public Use
  Company Number: None

PATIENT
  Age: 71 Year
  Sex: Female
  Weight: 82 kg

DRUGS (5)
  1. DEXAMETHASONE [Suspect]
     Active Substance: DEXAMETHASONE
     Indication: Induction of anaesthesia
     Route: 042
     Dates: start: 20240418, end: 20240418
  2. KETAMINE [Suspect]
     Active Substance: KETAMINE
     Indication: Induction of anaesthesia
     Route: 042
     Dates: start: 20240418, end: 20240418
  3. PROPOFOL [Suspect]
     Active Substance: PROPOFOL
     Indication: Induction of anaesthesia
     Route: 042
     Dates: start: 20240418, end: 20240418
  4. ATRACURIUM [Suspect]
     Active Substance: ATRACURIUM
     Indication: Induction of anaesthesia
     Route: 042
     Dates: start: 20240418, end: 20240418
  5. SUFENTANIL [Suspect]
     Active Substance: SUFENTANIL
     Indication: Induction of anaesthesia
     Route: 042
     Dates: start: 20240418, end: 20240418

REACTIONS (1)
  - Anaphylactic shock [Recovering/Resolving]

NARRATIVE: CASE EVENT DATE: 20240418
